FAERS Safety Report 21318602 (Version 4)
Quarter: 2022Q4

REPORT INFORMATION
  Report Type: Report from Study
  Country: US (occurrence: US)
  Receive Date: 20220911
  Receipt Date: 20221115
  Transmission Date: 20230113
  Serious: Yes (Disabling)
  Sender: FDA-Public Use
  Company Number: US-SA-SAC00000000367512

PATIENT
  Age: 78 Year
  Sex: Female

DRUGS (3)
  1. CEREZYME [Suspect]
     Active Substance: IMIGLUCERASE
     Indication: Gaucher^s disease
     Dosage: 3600 IU, QOW
     Route: 042
     Dates: start: 20090127
  2. CEREZYME [Suspect]
     Active Substance: IMIGLUCERASE
     Dosage: 3600 UNK, QOW
     Route: 042
     Dates: start: 20110720
  3. CEREZYME [Suspect]
     Active Substance: IMIGLUCERASE
     Dosage: 3600 MG, QOW
     Route: 042
     Dates: start: 20140703

REACTIONS (7)
  - Hypoacusis [Unknown]
  - COVID-19 [Unknown]
  - Pyrexia [Unknown]
  - Cough [Unknown]
  - Inflammation [Unknown]
  - Bursitis [Unknown]
  - Overweight [Unknown]

NARRATIVE: CASE EVENT DATE: 20220801
